FAERS Safety Report 14066324 (Version 1)
Quarter: 2017Q4

REPORT INFORMATION
  Report Type: Spontaneous
  Country: US (occurrence: US)
  Receive Date: 20171009
  Receipt Date: 20171009
  Transmission Date: 20180321
  Serious: Yes (Other)
  Sender: FDA-Public Use
  Company Number: US-PFIZER INC-2017428118

PATIENT
  Age: 8 Year
  Sex: Male

DRUGS (7)
  1. PERIACTIN [Concomitant]
     Active Substance: CYPROHEPTADINE HYDROCHLORIDE
     Dosage: 8 MG, 1X/DAY, (AT BED TIME)
     Route: 048
  2. IBUPROFEN. [Concomitant]
     Active Substance: IBUPROFEN
     Indication: HEADACHE
     Dosage: 6.5 ML, AS NEEDED
     Route: 048
  3. GENOTROPIN MQ [Suspect]
     Active Substance: SOMATROPIN
     Indication: GROWTH HORMONE DEFICIENCY
     Dosage: 1.6 MG, THREE TIMES PER WEEK
  4. OMNICEF /00497602/ [Concomitant]
     Active Substance: CEFOTAXIME SODIUM
     Dosage: 4.5 ML, DAILY
     Route: 048
  5. ALBUTEROL /00139501/ [Concomitant]
     Active Substance: ALBUTEROL
     Dosage: UNK
  6. CEPHALEXIN /00145501/ [Concomitant]
     Active Substance: CEPHALEXIN
     Dosage: 10 ML, 3X/DAY, (EVERY 8 HOURS)
     Route: 048
  7. GENOTROPIN MQ [Suspect]
     Active Substance: SOMATROPIN
     Dosage: 1.4 MG, THREE TIMES PER WEEK
     Route: 058

REACTIONS (2)
  - Burns third degree [Unknown]
  - Decubitus ulcer [Recovering/Resolving]
